FAERS Safety Report 6988066-6 (Version None)
Quarter: 2010Q3

REPORT INFORMATION
  Report Type: 
  Country: None (occurrence: None)
  Receive Date: 20100916
  Receipt Date: 20100908
  Transmission Date: 20110219
  Serious: Yes (Hospitalization)
  Sender: FDA-Public Use
  Company Number: A0881153A

PATIENT
  Sex: Female

DRUGS (1)
  1. AVANDIA [Suspect]
     Indication: TYPE 2 DIABETES MELLITUS
     Dosage: 4MG PER DAY
     Route: 048

REACTIONS (12)
  - BONE PAIN [None]
  - BREAST NEOPLASM [None]
  - DEAFNESS [None]
  - DEPRESSION [None]
  - EXOSTOSIS [None]
  - EXTRASYSTOLES [None]
  - HEADACHE [None]
  - HYPOTENSION [None]
  - PAIN [None]
  - PALPITATIONS [None]
  - THROAT TIGHTNESS [None]
  - VISUAL IMPAIRMENT [None]
